FAERS Safety Report 8045586-3 (Version None)
Quarter: 2012Q1

REPORT INFORMATION
  Report Type: 
  Country: None (occurrence: None)
  Receive Date: 20120113
  Receipt Date: 20120105
  Transmission Date: 20120608
  Serious: Yes (Hospitalization)
  Sender: FDA-Public Use
  Company Number: US-MERCK-1109USA03244

PATIENT
  Age: 60 Year
  Sex: Female

DRUGS (6)
  1. FOSAMAX [Suspect]
     Route: 048
     Dates: start: 20080101, end: 20090901
  2. FOSAMAX [Suspect]
     Indication: OSTEOPOROSIS PROPHYLAXIS
     Route: 048
     Dates: start: 19990801, end: 20011201
  3. FOSAMAX [Suspect]
     Route: 048
     Dates: start: 20011201, end: 20080301
  4. FOSAMAX [Suspect]
     Route: 048
     Dates: start: 20011201, end: 20080301
  5. FOSAMAX [Suspect]
     Indication: OSTEOPOROSIS
     Route: 048
     Dates: start: 19990801, end: 20011201
  6. CALCIUM (UNSPECIFIED) AND VITAMIN D (UNSPECIFIED) [Concomitant]
     Route: 065
     Dates: start: 20090901

REACTIONS (13)
  - FEMUR FRACTURE [None]
  - FOOT FRACTURE [None]
  - HYPERTENSION [None]
  - VITAMIN D DEFICIENCY [None]
  - ARTERIOSCLEROSIS CORONARY ARTERY [None]
  - ANKLE FRACTURE [None]
  - ARTERIOSCLEROSIS [None]
  - BACK PAIN [None]
  - ANXIETY [None]
  - DIABETIC VASCULAR DISORDER [None]
  - FIBULA FRACTURE [None]
  - GASTROOESOPHAGEAL REFLUX DISEASE [None]
  - FALL [None]
